FAERS Safety Report 17666400 (Version 1)
Quarter: 2020Q2

REPORT INFORMATION
  Report Type: Spontaneous
  Country: US (occurrence: US)
  Receive Date: 20200414
  Receipt Date: 20200414
  Transmission Date: 20200713
  Serious: Yes (Other)
  Sender: FDA-Public Use
  Company Number: None

PATIENT
  Age: 11 Year
  Sex: Male
  Weight: 38.25 kg

DRUGS (4)
  1. SOLU-MEDROL 40MG IV (IVIG PRE-MED) [Concomitant]
     Dates: start: 20200404, end: 20200405
  2. GAMUNEX-C [Suspect]
     Active Substance: HUMAN IMMUNOGLOBULIN G
     Indication: ENCEPHALITIS AUTOIMMUNE
     Dosage: ?          OTHER FREQUENCY:DAILY X 2 DAYS Q4W;?
     Route: 042
     Dates: start: 20200404, end: 20200405
  3. GAMUNEX-C [Suspect]
     Active Substance: HUMAN IMMUNOGLOBULIN G
     Indication: PAEDIATRIC AUTOIMMUNE NEUROPSYCHIATRIC DISORDERS ASSOCIATED WITH STREPTOCOCCAL INFECTION
     Dosage: ?          OTHER FREQUENCY:DAILY X 2 DAYS Q4W;?
     Route: 042
     Dates: start: 20200404, end: 20200405
  4. DIPHENHYDRAMINE 40MG IV (IVIG PRE-MED) [Concomitant]
     Dates: start: 20200404, end: 20200405

REACTIONS (4)
  - Symptom recurrence [None]
  - Condition aggravated [None]
  - Encephalitis autoimmune [None]
  - Recalled product [None]

NARRATIVE: CASE EVENT DATE: 20200406
